FAERS Safety Report 23321600 (Version 1)
Quarter: 2023Q4

REPORT INFORMATION
  Report Type: Spontaneous
  Country: DE (occurrence: DE)
  Receive Date: 20231220
  Receipt Date: 20231220
  Transmission Date: 20240110
  Serious: Yes (Death, Hospitalization, Other)
  Sender: FDA-Public Use
  Company Number: DE-BAYER-2023A181642

PATIENT
  Age: 48 Year
  Sex: Female

DRUGS (1)
  1. LAROTRECTINIB [Suspect]
     Active Substance: LAROTRECTINIB
     Indication: NTRK gene fusion cancer
     Dosage: 100 MG, BID
     Route: 048

REACTIONS (4)
  - Abdominal sepsis [Fatal]
  - Abdominal wound dehiscence [None]
  - Necrotising fasciitis [None]
  - Tumour necrosis [None]
